FAERS Safety Report 8018310-8 (Version None)
Quarter: 2012Q1

REPORT INFORMATION
  Report Type: 
  Country: None (occurrence: None)
  Receive Date: 20120103
  Receipt Date: 20111219
  Transmission Date: 20120608
  Serious: Yes (Hospitalization)
  Sender: FDA-Public Use
  Company Number: AU-UCBSA-048071

PATIENT
  Age: 18 Year
  Sex: Female
  Weight: 55 kg

DRUGS (6)
  1. VIMPAT [Suspect]
     Indication: EPILEPSY
     Dosage: 100MG MANE; 200 MG NOCTE
     Route: 048
     Dates: start: 20111129
  2. TRILEPTAL [Interacting]
     Indication: EPILEPSY
     Route: 048
  3. VIMPAT [Interacting]
     Route: 048
     Dates: end: 20111128
  4. ETHINYL ESTRADIOL AND NORETHINDRONE [Concomitant]
     Indication: ACNE
     Route: 048
  5. SPIRONOLACTONE [Concomitant]
     Indication: HIRSUTISM
     Route: 048
  6. ORAL CONTRACEPTIVE [Concomitant]
     Indication: PRECOCIOUS PUBERTY

REACTIONS (5)
  - CONVULSION [None]
  - DRUG INTERACTION [None]
  - POSTICTAL STATE [None]
  - ABDOMINAL PAIN [None]
  - PARTIAL SEIZURES [None]
